FAERS Safety Report 22276035 (Version 1)
Quarter: 2023Q2

REPORT INFORMATION
  Report Type: Spontaneous
  Country: US (occurrence: US)
  Receive Date: 20230502
  Receipt Date: 20230502
  Transmission Date: 20230721
  Serious: No
  Sender: FDA-Public Use
  Company Number: US-AERIE-2022-002735

PATIENT

DRUGS (1)
  1. ROCKLATAN [Suspect]
     Active Substance: LATANOPROST\NETARSUDIL MESYLATE
     Indication: Product used for unknown indication
     Dosage: UNK
     Route: 047

REACTIONS (10)
  - Conjunctival hyperaemia [Unknown]
  - Vision blurred [Unknown]
  - Conjunctival haemorrhage [Unknown]
  - Visual acuity reduced [Unknown]
  - Lacrimation increased [Unknown]
  - Ocular discomfort [Unknown]
  - Corneal deposits [Unknown]
  - Eye pruritus [Unknown]
  - Eye pain [Unknown]
  - Hypertension [Unknown]
